FAERS Safety Report 8332101-X (Version None)
Quarter: 2012Q2

REPORT INFORMATION
  Report Type: 
  Country: None (occurrence: None)
  Receive Date: 20120502
  Receipt Date: 20120423
  Transmission Date: 20120825
  Serious: Yes (Other)
  Sender: FDA-Public Use
  Company Number: US-RB-038034-12

PATIENT
  Age: 33 Year
  Sex: Female

DRUGS (3)
  1. SUBOXONE [Suspect]
     Dosage: CUTTING AND TAKING 4 MG IN THE MORNING, AND 2 MG TWICE DURING THE REST OF THE DAY
     Route: 060
     Dates: start: 20120418
  2. SUBOXONE [Suspect]
     Indication: DRUG DEPENDENCE
     Dosage: 1-2 MG DAILY
     Route: 060
     Dates: start: 20110801, end: 20120417
  3. KLONOPIN [Concomitant]
     Indication: ANXIETY DISORDER
     Route: 065

REACTIONS (4)
  - SUBSTANCE ABUSE [None]
  - WRONG TECHNIQUE IN DRUG USAGE PROCESS [None]
  - MATERNAL EXPOSURE DURING PREGNANCY [None]
  - FOETAL HEART RATE DECREASED [None]
